FAERS Safety Report 12395778 (Version 1)
Quarter: 2016Q2

REPORT INFORMATION
  Report Type: Spontaneous
  Country: US (occurrence: US)
  Receive Date: 20160523
  Receipt Date: 20160523
  Transmission Date: 20160815
  Serious: No
  Sender: FDA-Public Use
  Company Number: US-BANPHARM-20154461

PATIENT
  Age: 54 Year
  Sex: Female
  Weight: 82.55 kg

DRUGS (1)
  1. IBUPROFEN CAPSULES 200 MG [Suspect]
     Active Substance: IBUPROFEN
     Route: 048

REACTIONS (2)
  - Vomiting [Unknown]
  - Product odour abnormal [Unknown]
